FAERS Safety Report 4334246-8 (Version None)
Quarter: 2004Q2

REPORT INFORMATION
  Report Type: 
  Country: None (occurrence: None)
  Receive Date: 20040405
  Receipt Date: 20040323
  Transmission Date: 20050107
  Serious: Yes (Hospitalization, Disabling, Other)
  Sender: FDA-Public Use
  Company Number: NSADSS2002046358

PATIENT
  Age: 42 Year
  Sex: Male
  Weight: 63.5036 kg

DRUGS (6)
  1. REMICADE [Suspect]
     Indication: PSORIASIS
     Dosage: SEE IMAGE
     Route: 041
     Dates: start: 20020601, end: 20020601
  2. REMICADE [Suspect]
     Dates: start: 20020309, end: 20020309
  3. REMICADE [Suspect]
  4. REMICADE [Suspect]
  5. ETHAMBUTOL HCL [Concomitant]
  6. PZA (PYRAZINAMIDE) [Concomitant]

REACTIONS (6)
  - ANAEMIA [None]
  - BIOPSY BRONCHUS ABNORMAL [None]
  - BLOOD LACTATE DEHYDROGENASE INCREASED [None]
  - DISSEMINATED TUBERCULOSIS [None]
  - MYALGIA [None]
  - NECROSIS [None]
